FAERS Safety Report 9466719 (Version 1)
Quarter: 2013Q3

REPORT INFORMATION
  Report Type: Spontaneous
  Country: US (occurrence: GB)
  Receive Date: 20130820
  Receipt Date: 20130820
  Transmission Date: 20140515
  Serious: Yes (Other)
  Sender: FDA-Public Use
  Company Number: GB-FRI-1000047971

PATIENT
  Sex: Female

DRUGS (6)
  1. LINACLOTIDE [Suspect]
     Indication: IRRITABLE BOWEL SYNDROME
     Dosage: 1 DF
     Route: 048
     Dates: start: 20130703
  2. BISOPROLOL [Concomitant]
     Dosage: 2.5 MG, (2.5 MG, 1 IN 1 D)
     Route: 048
  3. FUROSEMIDE [Concomitant]
     Dosage: 40 MG, (40 MG, 1 IN 1 D)
     Route: 048
  4. LANSOPRAZOLE [Concomitant]
     Dosage: 30 MG (30 MG, 1 IN 1 D)
     Route: 048
  5. LEVOTHYROXINE [Concomitant]
     Dosage: 50 MG (50 MG, 1 IN 1 D)O
     Route: 048
  6. RAMIPRIL [Concomitant]
     Dosage: 2.5 MG, (2.5 MG, 1 IN 1 D)
     Route: 048

REACTIONS (2)
  - Muscle spasms [Not Recovered/Not Resolved]
  - Diarrhoea [Not Recovered/Not Resolved]
